FAERS Safety Report 13382570 (Version 1)
Quarter: 2017Q1

REPORT INFORMATION
  Report Type: Spontaneous
  Country: US (occurrence: US)
  Receive Date: 20170329
  Receipt Date: 20170329
  Transmission Date: 20170429
  Serious: Yes (Other)
  Sender: FDA-Public Use
  Company Number: PHEH2017US008374

PATIENT
  Sex: Male

DRUGS (1)
  1. AFINITOR [Suspect]
     Active Substance: EVEROLIMUS
     Indication: CARCINOID TUMOUR
     Route: 048

REACTIONS (5)
  - Diarrhoea [Unknown]
  - Vomiting [Unknown]
  - Abdominal pain lower [Unknown]
  - Fatigue [Unknown]
  - Rectal haemorrhage [Unknown]
